FAERS Safety Report 9341364 (Version 1)
Quarter: 2013Q2

REPORT INFORMATION
  Report Type: Spontaneous
  Country: US (occurrence: None)
  Receive Date: 20130610
  Receipt Date: 20130610
  Transmission Date: 20140414
  Serious: Yes (Hospitalization)
  Sender: FDA-Public Use
  Company Number: None

PATIENT
  Age: 72 Year
  Sex: Male
  Weight: 81.8 kg

DRUGS (4)
  1. AMIODARONE [Suspect]
     Indication: ATRIAL FIBRILLATION
     Dosage: 200MG DAILY ORAL
     Route: 048
     Dates: start: 20110625
  2. LOTREL [Concomitant]
  3. PACERONE [Concomitant]
  4. COUMADIN [Concomitant]

REACTIONS (6)
  - Tachycardia [None]
  - Chest discomfort [None]
  - Cardiac flutter [None]
  - Product substitution issue [None]
  - Product quality issue [None]
  - Heart rate increased [None]
